FAERS Safety Report 17203632 (Version 1)
Quarter: 2019Q4

REPORT INFORMATION
  Report Type: Spontaneous
  Country: JP (occurrence: JP)
  Receive Date: 20191226
  Receipt Date: 20191226
  Transmission Date: 20200122
  Serious: Yes (Other)
  Sender: FDA-Public Use
  Company Number: JP-MYLANLABS-2019M1127938

PATIENT
  Age: 62 Year
  Sex: Female

DRUGS (10)
  1. NITROGLYCERINE [Concomitant]
     Active Substance: NITROGLYCERIN
     Indication: ACUTE CORONARY SYNDROME
     Route: 042
  2. ACETYLSALICYLIC ACID [Suspect]
     Active Substance: ASPIRIN
     Indication: ACUTE CORONARY SYNDROME
     Dosage: 100 MILLIGRAM, QD
     Route: 048
  3. MEQUITAZINE [Concomitant]
     Active Substance: MEQUITAZINE
     Indication: URTICARIA
  4. NICORANDIL [Concomitant]
     Active Substance: NICORANDIL
     Indication: ACUTE CORONARY SYNDROME
     Route: 042
  5. EPINEPHRINE. [Suspect]
     Active Substance: EPINEPHRINE
     Indication: ANAPHYLACTIC REACTION
     Dosage: 0.3 MILLIGRAM
     Route: 030
  6. EPINEPHRINE. [Suspect]
     Active Substance: EPINEPHRINE
     Indication: ANAPHYLACTIC REACTION
  7. FEXOFENADINE HYDROCHLORIDE. [Concomitant]
     Active Substance: FEXOFENADINE HYDROCHLORIDE
     Indication: URTICARIA
  8. ACETYLSALICYLIC ACID [Suspect]
     Active Substance: ASPIRIN
     Indication: ANTIPLATELET THERAPY
     Dosage: LOADING DOSE
     Route: 048
  9. FEXOFENADINE HYDROCHLORIDE. [Concomitant]
     Active Substance: FEXOFENADINE HYDROCHLORIDE
     Indication: PRURITUS
     Dosage: 20 MILLIGRAM
     Route: 048
  10. MEQUITAZINE [Concomitant]
     Active Substance: MEQUITAZINE
     Indication: PRURITUS
     Dosage: 6 MILLIGRAM
     Route: 048

REACTIONS (2)
  - Condition aggravated [Recovered/Resolved]
  - Kounis syndrome [Recovered/Resolved]
